FAERS Safety Report 8499978-9 (Version None)
Quarter: 2012Q3

REPORT INFORMATION
  Report Type: 
  Country: None (occurrence: None)
  Receive Date: 20120710
  Receipt Date: 20120627
  Transmission Date: 20120928
  Serious: Yes (Death, Hospitalization)
  Sender: FDA-Public Use
  Company Number: SE-ELI_LILLY_AND_COMPANY-SE201206002581

PATIENT
  Sex: Male

DRUGS (13)
  1. CISORDINOL ACUTARD [Concomitant]
     Dosage: 150MG
     Route: 030
     Dates: start: 20111025, end: 20111025
  2. LITHIONIT [Concomitant]
  3. JANUVIA [Concomitant]
  4. SIMVASTATIN [Concomitant]
  5. APODORM [Concomitant]
  6. CISORDINOL                              /DEN/ [Concomitant]
     Dosage: 25MG
     Route: 048
     Dates: start: 20111020, end: 20111025
  7. METFORMIN HCL [Concomitant]
  8. FELODIPINE [Concomitant]
  9. ENALAPRIL MALEATE [Concomitant]
  10. PROPAVAN [Concomitant]
  11. ZYPREXA [Suspect]
     Indication: SCHIZOAFFECTIVE DISORDER
     Dosage: 10MG
     Route: 030
     Dates: start: 20111024, end: 20111025
  12. LASIX [Concomitant]
  13. ZOPICLONE [Concomitant]

REACTIONS (1)
  - ADVERSE DRUG REACTION [None]
